FAERS Safety Report 5160843-6 (Version None)
Quarter: 2006Q4

REPORT INFORMATION
  Report Type: 
  Country: None (occurrence: None)
  Receive Date: 20061130
  Receipt Date: 20060818
  Transmission Date: 20070319
  Serious: Yes (Death)
  Sender: FDA-Public Use
  Company Number: US-RB-3756-2006

PATIENT
  Sex: Female

DRUGS (4)
  1. SEROQUEL [Concomitant]
     Indication: DRUG USE FOR UNKNOWN INDICATION
  2. HALDOL [Concomitant]
     Indication: DRUG USE FOR UNKNOWN INDICATION
  3. LAMICTAL [Concomitant]
     Indication: DRUG USE FOR UNKNOWN INDICATION
  4. SUBOXONE [Suspect]
     Indication: DRUG USE FOR UNKNOWN INDICATION
     Dosage: 2MG TAKEN IN THE AM AND 8 MG TAKEN IN THE PM
     Route: 060

REACTIONS (1)
  - ARRHYTHMIA [None]
